FAERS Safety Report 21119747 (Version 1)
Quarter: 2022Q3

REPORT INFORMATION
  Report Type: Spontaneous
  Country: US (occurrence: None)
  Receive Date: 20220721
  Receipt Date: 20220721
  Transmission Date: 20221027
  Serious: Yes (Hospitalization)
  Sender: FDA-Public Use
  Company Number: None

PATIENT
  Sex: Male

DRUGS (1)
  1. STELARA [Suspect]
     Active Substance: USTEKINUMAB
     Indication: Crohn^s disease
     Dosage: OTHER FREQUENCY : EVRY 8 WKS;?
     Route: 058
     Dates: start: 20220630

REACTIONS (4)
  - Condition aggravated [None]
  - Abdominal pain [None]
  - Diarrhoea [None]
  - Weight abnormal [None]
